FAERS Safety Report 4964437-4 (Version None)
Quarter: 2006Q1

REPORT INFORMATION
  Report Type: 
  Country: None (occurrence: None)
  Receive Date: 20060331
  Receipt Date: 20060314
  Transmission Date: 20060701
  Serious: Yes (Hospitalization, Other)
  Sender: FDA-Public Use
  Company Number: US_0508120920

PATIENT
  Age: 46 Year
  Sex: Male
  Weight: 123.4 kg

DRUGS (24)
  1. ZYPREXA [Suspect]
     Indication: DEPRESSION
     Dosage: SEE IMAGE
     Dates: start: 19990301
  2. ZYPREXA [Suspect]
     Indication: DEPRESSION
     Dosage: SEE IMAGE
     Dates: start: 20030411
  3. RISPERDAL /SWE/ (RISPERIDONE) [Concomitant]
  4. GEODON [Concomitant]
  5. DEPAKOTE [Concomitant]
  6. DEPAKOTE - SLOW RELEASE (VALPROATE SEMISODIUM) [Concomitant]
  7. SERZONE [Concomitant]
  8. ZOLOFT [Concomitant]
  9. EFFEXOR [Concomitant]
  10. AMBIEN [Concomitant]
  11. CLONOPIN (CLONAZEPAM) [Concomitant]
  12. XENICAL /GFR/ (ORLISTAT) [Concomitant]
  13. TOPAMAX /AUS/ (TOPIRAMATE) [Concomitant]
  14. SYNTHROID [Concomitant]
  15. TEMAZEPAM [Concomitant]
  16. HYDROCODONE BITARTRATE [Concomitant]
  17. LIVOSTIN [Concomitant]
  18. TRILEPTAL [Concomitant]
  19. TRIMOX [Concomitant]
  20. SONATA [Concomitant]
  21. LOTENSIN [Concomitant]
  22. ABILIFY [Concomitant]
  23. FLOMAX [Concomitant]
  24. PRAVACHOL [Concomitant]

REACTIONS (13)
  - ANXIETY [None]
  - BENIGN PROSTATIC HYPERPLASIA [None]
  - BIPOLAR DISORDER [None]
  - DEPRESSION [None]
  - DIABETES MELLITUS NON-INSULIN-DEPENDENT [None]
  - DIABETIC COMA [None]
  - DRY MOUTH [None]
  - HAEMORRHOIDS [None]
  - HYPERTENSION [None]
  - NEPHROLITHIASIS [None]
  - RECTAL HAEMORRHAGE [None]
  - TREATMENT NONCOMPLIANCE [None]
  - VISION BLURRED [None]
